FAERS Safety Report 18449857 (Version 7)
Quarter: 2021Q1

REPORT INFORMATION
  Report Type: Report from Study
  Country: BR (occurrence: BR)
  Receive Date: 20201030
  Receipt Date: 20210224
  Transmission Date: 20210419
  Serious: Yes (Death, Life-Threatening, Other)
  Sender: FDA-Public Use
  Company Number: BR-GILEAD-2020-0490348

PATIENT
  Age: 61 Year
  Sex: Female
  Weight: 53 kg

DRUGS (35)
  1. PLACEBO [Suspect]
     Active Substance: UNSPECIFIED INGREDIENT
     Indication: COVID-19 PNEUMONIA
     Dosage: MOST RECENT DOSE OF BLINDED TOCILIZUMAB PRIOR TO SAE/AE ONSET: 09/AUG/2020 AT 09:42 HR
     Route: 042
     Dates: start: 20200808
  2. PLACEBO [Suspect]
     Active Substance: UNSPECIFIED INGREDIENT
     Dosage: UNK
     Route: 042
  3. LOSARTAN. [Concomitant]
     Active Substance: LOSARTAN
     Indication: HYPERTENSION
     Dates: start: 2000
  4. SALINE [SODIUM CHLORIDE] [Concomitant]
     Active Substance: SODIUM CHLORIDE
     Indication: HAEMATURIA
     Dosage: 250 ML, QD
     Dates: start: 20200824, end: 20200828
  5. OXYGEN. [Concomitant]
     Active Substance: OXYGEN
     Dosage: 10 L/MINSUBSEQUENT DATES: 08/AUG/2020
     Route: 055
     Dates: start: 20200808
  6. OXYGEN. [Concomitant]
     Active Substance: OXYGEN
     Dosage: 75 UNK
     Route: 007
     Dates: start: 20200811
  7. REMDESIVIR. [Suspect]
     Active Substance: REMDESIVIR
     Indication: COVID-19 PNEUMONIA
     Dosage: MOST RECENT DOSE OF REMDESIVIR PRIOR TO SAE ONSET: 09/AUG/2020 AT 13:05 HR
     Route: 042
     Dates: start: 20200808, end: 20200809
  8. OMEPRAZOLE. [Concomitant]
     Active Substance: OMEPRAZOLE
     Indication: PROPHYLAXIS AGAINST GASTROINTESTINAL ULCER
     Dates: start: 20200806
  9. POTASSIUM CHLORIDE. [Concomitant]
     Active Substance: POTASSIUM CHLORIDE
     Indication: HYPOKALAEMIA
     Dosage: 20 ML, QD
     Dates: start: 20200824, end: 20200824
  10. DIPIRONE [Concomitant]
     Active Substance: METAMIZOLE SODIUM
     Indication: COVID-19
     Dates: start: 20200806
  11. PLASIL [METOCLOPRAMIDE] [Concomitant]
     Active Substance: METOCLOPRAMIDE
     Dates: start: 20200806
  12. INSULIN, REGULAR [Concomitant]
     Active Substance: INSULIN NOS
     Indication: ACUTE KIDNEY INJURY
     Dates: start: 20200813
  13. INSULIN [Concomitant]
     Active Substance: INSULIN NOS
     Indication: ACUTE KIDNEY INJURY
     Dates: start: 20200813
  14. OXYGEN. [Concomitant]
     Active Substance: OXYGEN
     Dosage: 45 %
     Route: 007
     Dates: start: 20200825
  15. OXYGEN. [Concomitant]
     Active Substance: OXYGEN
     Dosage: 35 UNK
     Dates: start: 20200828
  16. REMDESIVIR. [Suspect]
     Active Substance: REMDESIVIR
     Dosage: MOST RECENT DOSE OF REMDESIVIR PRIOR TO SAE ONSET: 17/AUG/2020 AT 15:07 HR
     Route: 042
     Dates: start: 20200808, end: 20200809
  17. OSELTAMIVIR [Concomitant]
     Active Substance: OSELTAMIVIR
     Indication: COVID-19
  18. ENOXAPARIN [Concomitant]
     Active Substance: ENOXAPARIN
     Indication: THROMBOSIS PROPHYLAXIS
     Dates: start: 20200806
  19. MAGNESIUM SULPHATE [MAGNESIUM SULFATE] [Concomitant]
     Active Substance: MAGNESIUM SULFATE
     Indication: HYPOMAGNESAEMIA
     Dosage: 20 ML, QD
     Dates: start: 20200824, end: 20200826
  20. OSELTAMIVIR [Concomitant]
     Active Substance: OSELTAMIVIR
     Indication: INFLUENZA
     Dates: start: 20200806
  21. DEXAMETHASONE. [Concomitant]
     Active Substance: DEXAMETHASONE
     Indication: COVID-19
     Dates: start: 20200806
  22. MIRTAZAPINE. [Concomitant]
     Active Substance: MIRTAZAPINE
     Indication: DEPRESSION
     Dates: start: 2016
  23. CEFTRIAXONE. [Concomitant]
     Active Substance: CEFTRIAXONE
     Indication: ANTIBIOTIC PROPHYLAXIS
     Dates: start: 20200806
  24. PRECEDEX [Concomitant]
     Active Substance: DEXMEDETOMIDINE HYDROCHLORIDE
     Indication: DEPRESSION
     Dates: start: 20200806
  25. SIMVASTATIN. [Concomitant]
     Active Substance: SIMVASTATIN
     Indication: DYSLIPIDAEMIA
     Dates: start: 2000
  26. GLUCOSE [Concomitant]
     Active Substance: DEXTROSE
     Indication: ACUTE KIDNEY INJURY
     Dosage: 5 AMPULE
     Dates: start: 20200813
  27. OXYGEN. [Concomitant]
     Active Substance: OXYGEN
     Dosage: 50 UNK
     Route: 007
     Dates: start: 20200829
  28. PLACEBO [Suspect]
     Active Substance: UNSPECIFIED INGREDIENT
     Dosage: UNK
     Route: 042
  29. AZITHROMICIN [Concomitant]
     Active Substance: AZITHROMYCIN
     Indication: ANTIBIOTIC PROPHYLAXIS
     Dates: start: 20200806
  30. ALENIA [BUDESONIDE;FORMOTEROL FUMARATE] [Concomitant]
     Active Substance: BUDESONIDE\FORMOTEROL FUMARATE
     Indication: ASTHMA
     Dates: start: 2017
  31. SEROQUEL [Concomitant]
     Active Substance: QUETIAPINE FUMARATE
     Indication: DELIRIUM
     Dosage: UNK
     Dates: start: 20200823, end: 20200826
  32. OXYGEN. [Concomitant]
     Active Substance: OXYGEN
     Dosage: 30 UNK
     Route: 007
     Dates: start: 20200821
  33. OXYGEN. [Concomitant]
     Active Substance: OXYGEN
     Dosage: 13 L/MIN
     Route: 055
     Dates: start: 20200808
  34. OXYGEN. [Concomitant]
     Active Substance: OXYGEN
     Dosage: 50 UNK
     Dates: start: 20200829
  35. OXYGEN. [Concomitant]
     Active Substance: OXYGEN
     Dosage: 40 UNK
     Dates: start: 20200830

REACTIONS (4)
  - Pneumonia [Recovered/Resolved]
  - Sepsis [Recovered/Resolved]
  - Systemic candida [Recovered/Resolved]
  - Tracheobronchitis [Recovered/Resolved]

NARRATIVE: CASE EVENT DATE: 20200810
